FAERS Safety Report 14353352 (Version 2)
Quarter: 2018Q1

REPORT INFORMATION
  Report Type: Spontaneous
  Country: IL (occurrence: IL)
  Receive Date: 20180105
  Receipt Date: 20180303
  Transmission Date: 20180509
  Serious: Yes (Other)
  Sender: FDA-Public Use
  Company Number: IL-BAXTER-2017BAX044187

PATIENT
  Age: 60 Year
  Sex: Male

DRUGS (3)
  1. GLUCOSE 5% IV INFUSION BP VIAFLO [Suspect]
     Active Substance: DEXTROSE
     Indication: MEDICATION DILUTION
     Dosage: VOLUME: 500 ML; COMPOUNDED WITH OXALIPLATIN (SIXTH OXALIPLATIN TREATMENT)
     Route: 065
     Dates: start: 20171217
  2. OXALIPLATIN. [Suspect]
     Active Substance: OXALIPLATIN
     Indication: PRODUCT USED FOR UNKNOWN INDICATION
     Dosage: FIVE OXALIPLATIN TREATMENTS
     Route: 065
  3. OXALIPLATIN. [Suspect]
     Active Substance: OXALIPLATIN
     Dosage: 200 MG IN 40 ML; COMPOUNDED WITH GLUCOSE 5 % (SIXTH OXALIPLATIN TREATMENT)
     Route: 065
     Dates: start: 20171217

REACTIONS (3)
  - Hypersensitivity [Recovered/Resolved]
  - Abdominal pain [Recovered/Resolved]
  - Tremor [Recovered/Resolved]

NARRATIVE: CASE EVENT DATE: 20171217
